FAERS Safety Report 13909753 (Version 1)
Quarter: 2017Q3

REPORT INFORMATION
  Report Type: Spontaneous
  Country: US (occurrence: US)
  Receive Date: 20170828
  Receipt Date: 20170828
  Transmission Date: 20171127
  Serious: Yes (Disabling)
  Sender: FDA-Public Use
  Company Number: US-PROCTER+GAMBLE-GS17092261

PATIENT

DRUGS (1)
  1. PEPTO-BISMOL NOS [Suspect]
     Active Substance: BISMUTH SUBSALICYLATE OR CALCIUM CARBONATE
     Route: 031

REACTIONS (2)
  - Blindness [Not Recovered/Not Resolved]
  - Incorrect route of drug administration [Unknown]
